FAERS Safety Report 8073887-1 (Version None)
Quarter: 2011Q4

REPORT INFORMATION
  Report Type: 
  Country: None (occurrence: None)
  Receive Date: 20111221
  Receipt Date: 20110401
  Transmission Date: 20120403
  Serious: Yes (Other)
  Sender: FDA-Public Use
  Company Number: PHHY2011US27565

PATIENT

DRUGS (1)
  1. EXJADE [Suspect]

REACTIONS (1)
  - PLATELET COUNT DECREASED [None]
